FAERS Safety Report 17743902 (Version 1)
Quarter: 2020Q2

REPORT INFORMATION
  Report Type: Spontaneous
  Country: US (occurrence: US)
  Receive Date: 20200504
  Receipt Date: 20200504
  Transmission Date: 20200714
  Serious: No
  Sender: FDA-Public Use
  Company Number: US-AMNEAL PHARMACEUTICALS-2020-AMRX-01118

PATIENT
  Sex: Male

DRUGS (1)
  1. GUAIFENESIN. [Suspect]
     Active Substance: GUAIFENESIN
     Indication: PRODUCTIVE COUGH
     Dosage: 1 DOSAGE FORM, EVERY 12HR (1 CAPLET IN THE AM AND 12 HOURS LATER 1 CAPLET IN THE PM)
     Route: 048
     Dates: start: 20200404, end: 20200406

REACTIONS (1)
  - Drug ineffective [Unknown]

NARRATIVE: CASE EVENT DATE: 20200404
